FAERS Safety Report 13953328 (Version 2)
Quarter: 2017Q3

REPORT INFORMATION
  Report Type: Report from Study
  Country: CN (occurrence: CN)
  Receive Date: 20170911
  Receipt Date: 20170915
  Transmission Date: 20171128
  Serious: Yes (Other)
  Sender: FDA-Public Use
  Company Number: CN-ROCHE-1959516

PATIENT
  Age: 44 Year
  Sex: Male
  Weight: 69 kg

DRUGS (21)
  1. BACILLUS SUBTILIS [Concomitant]
     Active Substance: BACILLUS SUBTILIS
     Route: 065
  2. SPIRONOLACTONE. [Concomitant]
     Active Substance: SPIRONOLACTONE
     Indication: POLYURIA
     Route: 048
     Dates: start: 20160723
  3. CEFOPERAZONE [Concomitant]
     Active Substance: CEFOPERAZONE
     Route: 041
     Dates: start: 20160727, end: 20170805
  4. DOMPERIDONE [Concomitant]
     Active Substance: DOMPERIDONE
     Route: 065
     Dates: start: 20160725, end: 20170805
  5. ENTEROCOCCUS FAECIUM [Concomitant]
     Route: 048
     Dates: start: 20160723, end: 20170805
  6. ORNITHINE ASPARTATE [Concomitant]
     Active Substance: ORNITHINE ASPARTATE
     Indication: HYPERAMMONAEMIA
     Route: 041
     Dates: start: 20160723, end: 20170723
  7. PEG-INTERFERON ALFA 2A [Suspect]
     Active Substance: PEGINTERFERON ALFA-2A
     Indication: CHRONIC HEPATITIS B
     Route: 058
     Dates: start: 20150102, end: 20160415
  8. CAFFEIC ACID [Concomitant]
     Active Substance: CAFFEIC ACID
     Route: 065
     Dates: start: 20170805
  9. POLYENE PHOSPHATIDYLCHOLINE [Concomitant]
     Active Substance: PHOSPHOLIPID
     Route: 048
     Dates: start: 20170805
  10. GLUCOSE [Concomitant]
     Active Substance: DEXTROSE
     Route: 041
     Dates: start: 20160723, end: 20170727
  11. SULBACTAM SODIUM [Concomitant]
     Active Substance: SULBACTAM SODIUM
     Route: 041
     Dates: start: 20160727, end: 20170805
  12. GLUTATHIONE [Concomitant]
     Active Substance: GLUTATHIONE
     Route: 041
     Dates: start: 20160723, end: 20170805
  13. FUROSEMIDE. [Concomitant]
     Active Substance: FUROSEMIDE
     Route: 048
     Dates: start: 20160723
  14. CAFFEIC ACID [Concomitant]
     Active Substance: CAFFEIC ACID
     Route: 048
     Dates: start: 20160723, end: 20170727
  15. IRON SUCROSE [Concomitant]
     Active Substance: IRON SUCROSE
     Indication: ANAEMIA
     Route: 041
     Dates: start: 20160723, end: 20170727
  16. ALBUMIN [Concomitant]
     Active Substance: ALBUMIN HUMAN
     Indication: HYPOPROTEINAEMIA
     Route: 041
     Dates: start: 20160723, end: 20170723
  17. ADEFOVIR DIPIVOXIL. [Concomitant]
     Active Substance: ADEFOVIR DIPIVOXIL
     Indication: HEPATITIS B
     Route: 048
     Dates: start: 20141125
  18. VITAMIN K1 [Concomitant]
     Active Substance: PHYTONADIONE
     Route: 041
     Dates: start: 20160723, end: 20160805
  19. ORNITHINE ASPARTATE [Concomitant]
     Active Substance: ORNITHINE ASPARTATE
     Route: 065
     Dates: start: 20170725, end: 20170805
  20. MONTMORILLONITE [Concomitant]
     Active Substance: MONTMORILLONITE
     Indication: DIARRHOEA
     Route: 048
     Dates: start: 20160727, end: 20170727
  21. PANTOPRAZOLE [Concomitant]
     Active Substance: PANTOPRAZOLE
     Route: 041
     Dates: start: 20160723, end: 20170725

REACTIONS (1)
  - Hepatic failure [Unknown]

NARRATIVE: CASE EVENT DATE: 20160723
